FAERS Safety Report 5255315-4 (Version None)
Quarter: 2007Q1

REPORT INFORMATION
  Report Type: 
  Country: None (occurrence: None)
  Receive Date: 20070305
  Receipt Date: 20070301
  Transmission Date: 20070707
  Serious: Yes (Hospitalization)
  Sender: FDA-Public Use
  Company Number: JP-JPN-A200700176

PATIENT
  Age: 68 Year
  Sex: Female
  Weight: 48 kg

DRUGS (11)
  1. VALTREX [Suspect]
     Indication: HERPES ZOSTER
     Dosage: 1000MG THREE TIMES PER DAY
     Route: 048
     Dates: start: 20070117, end: 20070118
  2. TENORMIN [Concomitant]
     Dosage: 25MG PER DAY
     Route: 048
     Dates: end: 20070119
  3. CONIEL [Concomitant]
     Dosage: 8MG PER DAY
     Route: 048
     Dates: end: 20070119
  4. RENAGEL [Concomitant]
     Dosage: 3000MG PER DAY
     Route: 048
  5. ZANTAC [Concomitant]
     Dosage: 150MG PER DAY
     Route: 065
     Dates: start: 20070119
  6. PLETAL [Concomitant]
     Dosage: 100MG PER DAY
     Route: 048
     Dates: end: 20070119
  7. PLETAL [Concomitant]
     Dosage: 200MG PER DAY
     Route: 048
     Dates: start: 20070120
  8. ASPIRIN [Concomitant]
     Dosage: 100MG PER DAY
     Route: 048
  9. GLAKAY [Concomitant]
     Dosage: 30MG PER DAY
     Route: 048
     Dates: end: 20070119
  10. MICARDIS [Concomitant]
     Dosage: 40MG PER DAY
     Route: 048
     Dates: start: 20070120
  11. NORVASC [Concomitant]
     Dosage: 5MG PER DAY
     Route: 048
     Dates: start: 20070120

REACTIONS (9)
  - ABNORMAL BEHAVIOUR [None]
  - DELIRIUM [None]
  - DIZZINESS [None]
  - DYSLALIA [None]
  - EATING DISORDER [None]
  - GAIT DISTURBANCE [None]
  - NERVOUS SYSTEM DISORDER [None]
  - PAIN [None]
  - SPEECH DISORDER [None]
